FAERS Safety Report 5858257-6 (Version None)
Quarter: 2008Q3

REPORT INFORMATION
  Report Type: 
  Country: None (occurrence: None)
  Receive Date: 20080826
  Receipt Date: 20080821
  Transmission Date: 20090109
  Serious: Yes (Death, Hospitalization)
  Sender: FDA-Public Use
  Company Number: A0744146A

PATIENT
  Age: 66 Year
  Sex: Male
  Weight: 54.5 kg

DRUGS (5)
  1. AVANDIA [Suspect]
     Indication: DIABETES MELLITUS
     Route: 048
     Dates: start: 20010101, end: 20040101
  2. METOPROLOL TARTRATE [Concomitant]
     Dates: start: 20010522, end: 20030701
  3. TEMAZEPAM [Concomitant]
  4. RANITIDINE [Concomitant]
  5. CAPTOPRIL [Concomitant]

REACTIONS (5)
  - CARDIAC FAILURE CONGESTIVE [None]
  - CEREBROVASCULAR ACCIDENT [None]
  - DEATH [None]
  - FLUID RETENTION [None]
  - MYOCARDIAL INFARCTION [None]
